FAERS Safety Report 8301920-8 (Version None)
Quarter: 2012Q2

REPORT INFORMATION
  Report Type: 
  Country: None (occurrence: None)
  Receive Date: 20120420
  Receipt Date: 20120409
  Transmission Date: 20120825
  Serious: Yes (Hospitalization, Other)
  Sender: FDA-Public Use
  Company Number: ES-ROCHE-1057921

PATIENT

DRUGS (5)
  1. VINCRISTINE [Suspect]
     Indication: NON-HODGKIN'S LYMPHOMA
  2. PREDNISONE [Suspect]
     Indication: NON-HODGKIN'S LYMPHOMA
  3. CYCLOPHOSPHAMIDE [Suspect]
     Indication: NON-HODGKIN'S LYMPHOMA
  4. MABTHERA [Suspect]
     Indication: NON-HODGKIN'S LYMPHOMA
  5. DOXORUBICIN HYDROCHLORIDE [Suspect]
     Indication: NON-HODGKIN'S LYMPHOMA

REACTIONS (3)
  - TOXICITY TO VARIOUS AGENTS [None]
  - FEBRILE NEUTROPENIA [None]
  - NEUTROPENIA [None]
